FAERS Safety Report 10580864 (Version 2)
Quarter: 2015Q1

REPORT INFORMATION
  Report Type: Report from Study
  Country: US (occurrence: US)
  Receive Date: 20141113
  Receipt Date: 20150129
  Transmission Date: 20150720
  Serious: Yes (Other)
  Sender: FDA-Public Use
  Company Number: US-BIOGENIDEC-2014BI117271

PATIENT
  Age: 57 Year
  Sex: Female

DRUGS (1)
  1. AVONEX [Suspect]
     Active Substance: INTERFERON BETA-1A
     Indication: MULTIPLE SCLEROSIS
     Route: 030
     Dates: start: 20020316

REACTIONS (4)
  - Multiple sclerosis [Unknown]
  - Myocardial infarction [Recovered/Resolved]
  - Narcolepsy [Not Recovered/Not Resolved]
  - Fibromuscular dysplasia [Not Recovered/Not Resolved]

NARRATIVE: CASE EVENT DATE: 201203
